FAERS Safety Report 25191961 (Version 2)
Quarter: 2025Q2

REPORT INFORMATION
  Report Type: Spontaneous
  Country: FR (occurrence: FR)
  Receive Date: 20250414
  Receipt Date: 20250422
  Transmission Date: 20250716
  Serious: Yes (Hospitalization, Other)
  Sender: ORGANON
  Company Number: FR-GSK-FR2025EME006238

PATIENT
  Age: 46 Year
  Sex: Female
  Weight: 59 kg

DRUGS (25)
  1. SINEMET [Suspect]
     Active Substance: CARBIDOPA\LEVODOPA
     Indication: Tremor
     Dosage: UNK,1.5 TAB MORNING, 1 TAB MIDDAY AND 1 TAB IN THE EVENING
  2. SINEMET [Suspect]
     Active Substance: CARBIDOPA\LEVODOPA
  3. SINEMET [Suspect]
     Active Substance: CARBIDOPA\LEVODOPA
     Dosage: UNK UNK, TID CURRENTLY (1 TAB 3 TIMES)
  4. SINEMET [Suspect]
     Active Substance: CARBIDOPA\LEVODOPA
  5. REQUIP [Suspect]
     Active Substance: ROPINIROLE HYDROCHLORIDE
     Indication: Parkinson^s disease
     Dosage: UNK UNK, QD, 1 MORNING
  6. REQUIP [Suspect]
     Active Substance: ROPINIROLE HYDROCHLORIDE
  7. REQUIP [Suspect]
     Active Substance: ROPINIROLE HYDROCHLORIDE
     Dates: start: 20200210
  8. REQUIP [Suspect]
     Active Substance: ROPINIROLE HYDROCHLORIDE
  9. REQUIP [Suspect]
     Active Substance: ROPINIROLE HYDROCHLORIDE
     Dates: start: 20200911, end: 202311
  10. LAMICTAL [Suspect]
     Active Substance: LAMOTRIGINE
     Indication: Product used for unknown indication
  11. RASAGILINE [Suspect]
     Active Substance: RASAGILINE
     Indication: Parkinson^s disease
     Dosage: UNK UNK, QD,1 MORNING
  12. RASAGILINE [Suspect]
     Active Substance: RASAGILINE
     Dosage: 1 MG, QD
  13. RASAGILINE [Suspect]
     Active Substance: RASAGILINE
  14. KETOPROFEN [Suspect]
     Active Substance: KETOPROFEN
     Indication: Product used for unknown indication
  15. KETOPROFEN [Suspect]
     Active Substance: KETOPROFEN
  16. ROPINIROLE [Suspect]
     Active Substance: ROPINIROLE
     Indication: Parkinson^s disease
     Dosage: UNK UNK, QD,1 MORNING
  17. ROPINIROLE [Suspect]
     Active Substance: ROPINIROLE
  18. ROPINIROLE [Suspect]
     Active Substance: ROPINIROLE
     Dosage: 8 MG, QD
  19. ROPINIROLE [Suspect]
     Active Substance: ROPINIROLE
  20. ROPINIROLE [Suspect]
     Active Substance: ROPINIROLE
  21. PRAMIPEXOLE [Suspect]
     Active Substance: PRAMIPEXOLE
     Indication: Product used for unknown indication
  22. ALPRAZOLAM [Suspect]
     Active Substance: ALPRAZOLAM
     Indication: Product used for unknown indication
     Dosage: 1 DF, QD
  23. ZOPICLONE [Suspect]
     Active Substance: ZOPICLONE
     Indication: Product used for unknown indication
     Dosage: 1 DF, QD
  24. RASAGILINE [Suspect]
     Active Substance: RASAGILINE
     Indication: Parkinson^s disease
     Dates: start: 20191022, end: 202504
  25. RASAGILINE [Suspect]
     Active Substance: RASAGILINE
     Indication: Behaviour disorder

REACTIONS (36)
  - Depression [Unknown]
  - Akinesia [Unknown]
  - Suicidal ideation [Unknown]
  - Injury [Unknown]
  - Adverse drug reaction [Unknown]
  - Pain in extremity [Unknown]
  - Tremor [Unknown]
  - Pruritus [Unknown]
  - Alopecia [Unknown]
  - Hyposmia [Unknown]
  - Mental disorder [Unknown]
  - Fatigue [Unknown]
  - Restless legs syndrome [Unknown]
  - Back pain [Unknown]
  - Paraesthesia [Unknown]
  - Lordosis [Unknown]
  - Osteoarthritis [Unknown]
  - Urinary incontinence [Unknown]
  - Disturbance in attention [Unknown]
  - Orthostatic intolerance [Unknown]
  - Memory impairment [Unknown]
  - Lack of spontaneous speech [Unknown]
  - Poor quality sleep [Unknown]
  - Gastrointestinal hypermotility [Unknown]
  - Attention deficit hyperactivity disorder [Unknown]
  - Fine motor skill dysfunction [Unknown]
  - Mixed anxiety and depressive disorder [Unknown]
  - Depressed mood [Unknown]
  - Weight increased [Unknown]
  - Depressive symptom [Unknown]
  - Behaviour disorder [Recovered/Resolved]
  - Libido increased [Unknown]
  - Hypersexuality [Unknown]
  - Eating disorder [Unknown]
  - Gambling disorder [Unknown]
  - Insomnia [Unknown]

NARRATIVE: CASE EVENT DATE: 20240301
